FAERS Safety Report 8818630 (Version 2)
Quarter: 2013Q1

REPORT INFORMATION
  Report Type: Spontaneous
  Country: FR (occurrence: FR)
  Receive Date: 20121001
  Receipt Date: 20130123
  Transmission Date: 20140127
  Serious: Yes (Hospitalization)
  Sender: FDA-Public Use
  Company Number: PHHY2012FR083599

PATIENT
  Age: 80 Year
  Sex: Female

DRUGS (5)
  1. AMOXICILLIN SANDOZ [Suspect]
     Indication: BRONCHITIS
     Route: 048
     Dates: start: 20120713, end: 20120717
  2. CLARITHROMYCIN SANDOZ [Suspect]
     Indication: BRONCHITIS
     Route: 048
     Dates: start: 20120713, end: 20120717
  3. KALEORID [Concomitant]
  4. ZONDAR [Concomitant]
  5. CAPTOPRIL W/HYDROCHLOROTHIAZIDE [Concomitant]

REACTIONS (9)
  - Nephritis allergic [Recovered/Resolved]
  - Renal failure acute [Recovered/Resolved]
  - General physical condition abnormal [Recovered/Resolved]
  - Hyperkalaemia [Unknown]
  - Hypotension [Unknown]
  - Eosinophilia [Recovered/Resolved]
  - Rash [Recovered/Resolved]
  - Rash erythematous [Recovered/Resolved]
  - Rash pruritic [Recovered/Resolved]
